FAERS Safety Report 5428560-2 (Version None)
Quarter: 2007Q3

REPORT INFORMATION
  Report Type: 
  Country: None (occurrence: None)
  Receive Date: 20070824
  Receipt Date: 20070815
  Transmission Date: 20080115
  Serious: Yes (Other)
  Sender: FDA-Public Use
  Company Number: 163-21880-07080944

PATIENT
  Age: 59 Year
  Sex: Female

DRUGS (8)
  1. REVLIMID [Suspect]
     Indication: MULTIPLE MYELOMA
     Dosage: 25 MG, 1 IN1 1 D, ORAL
     Route: 048
     Dates: start: 20070713, end: 20070803
  2. DECADRON [Concomitant]
  3. LUNESTA [Concomitant]
  4. LEXAPRO [Concomitant]
  5. IMODIUM [Concomitant]
  6. MULTIVITAMIN [Concomitant]
  7. DURAGESIC (FENTANYL) (POULTICE OR PATCH) [Concomitant]
  8. DILAUDID [Concomitant]

REACTIONS (1)
  - STEVENS-JOHNSON SYNDROME [None]
